FAERS Safety Report 25872590 (Version 3)
Quarter: 2025Q4

REPORT INFORMATION
  Report Type: Spontaneous
  Country: BR (occurrence: BR)
  Receive Date: 20251002
  Receipt Date: 20251201
  Transmission Date: 20260118
  Serious: Yes (Other)
  Sender: SANOFI AVENTIS
  Company Number: BR-SANOFI-02666522

PATIENT
  Age: 62 Year
  Sex: Female

DRUGS (6)
  1. APIDRA SOLOSTAR [Suspect]
     Active Substance: INSULIN GLULISINE
     Indication: Type 2 diabetes mellitus
     Dosage: 1 X 28 IU IN THE MORNING AND 1 X 26 IU AT NIGHT
     Route: 058
     Dates: start: 2016, end: 2016
  2. APIDRA SOLOSTAR [Suspect]
     Active Substance: INSULIN GLULISINE
     Dosage: 14U IN THE MORNING, 17U BEFORE LUNCH AND 10U IN THE EVENING.
     Route: 058
     Dates: start: 2016
  3. ROSUVASTATIN CALCIUM [Concomitant]
     Active Substance: ROSUVASTATIN CALCIUM
     Indication: Cardiac disorder
     Dosage: 1 TABLET AT NIGHT, QD
     Route: 048
     Dates: start: 2016
  4. GLIFAGE [Concomitant]
     Active Substance: METFORMIN HYDROCHLORIDE
     Indication: Type 2 diabetes mellitus
     Dosage: TWICE A DAY, AFTER LUNCH AND BEFORE DINNER
     Route: 048
     Dates: start: 2016
  5. ACETAMINOPHEN\ASCORBIC ACID [Concomitant]
     Active Substance: ACETAMINOPHEN\ASCORBIC ACID
     Indication: Myocardial infarction
     Dosage: 2 DF, QD (2 TABLETS AFTER LUNCH)
     Route: 048
     Dates: start: 2016
  6. BISOPROLOL FUMARATE [Concomitant]
     Active Substance: BISOPROLOL FUMARATE
     Indication: Cardiovascular disorder
     Dosage: 1 DF, QD
     Route: 048
     Dates: start: 2016

REACTIONS (3)
  - Myocardial infarction [Recovered/Resolved]
  - Anxiety [Not Recovered/Not Resolved]
  - Blood glucose increased [Recovered/Resolved]

NARRATIVE: CASE EVENT DATE: 20170101
